FAERS Safety Report 12682243 (Version 1)
Quarter: 2016Q3

REPORT INFORMATION
  Report Type: Report from Study
  Country: US (occurrence: US)
  Receive Date: 20160824
  Receipt Date: 20160824
  Transmission Date: 20161109
  Serious: Yes (Other)
  Sender: FDA-Public Use
  Company Number: US-AMGEN-USASL2016095897

PATIENT
  Age: 78 Year
  Sex: Male
  Weight: 68.27 kg

DRUGS (11)
  1. PROCRIT [Suspect]
     Active Substance: ERYTHROPOIETIN
     Indication: NEPHROGENIC ANAEMIA
     Dosage: UNK
     Route: 065
  2. PROCRIT [Suspect]
     Active Substance: ERYTHROPOIETIN
     Dosage: 20,000, UNK, UNK
     Route: 065
     Dates: start: 20160512
  3. SODIUM BICARBONATE. [Concomitant]
     Active Substance: SODIUM BICARBONATE
     Dosage: 650 MG, FOUR TABLETS TWICE A DAY
  4. PROCRIT [Suspect]
     Active Substance: ERYTHROPOIETIN
     Dosage: 10,000, UNK, UNK
     Route: 065
     Dates: start: 20151209
  5. PROCRIT [Suspect]
     Active Substance: ERYTHROPOIETIN
     Dosage: 10,000, UNK, UNK
     Route: 065
     Dates: start: 20160115
  6. PROCRIT [Suspect]
     Active Substance: ERYTHROPOIETIN
     Dosage: 20,000, UNK, UNK
     Route: 065
     Dates: start: 20160616
  7. PROCRIT [Suspect]
     Active Substance: ERYTHROPOIETIN
     Dosage: 20,000, UNK, UNK
     Route: 065
     Dates: start: 20160627
  8. PROCRIT [Suspect]
     Active Substance: ERYTHROPOIETIN
     Dosage: 20,000 UNIT/ML, EVERY 4 WEEKS
     Route: 065
     Dates: start: 20160711
  9. PROCRIT [Suspect]
     Active Substance: ERYTHROPOIETIN
     Dosage: 10,000, UNK, UNK
     Route: 065
     Dates: start: 20160407
  10. RENVELA [Concomitant]
     Active Substance: SEVELAMER CARBONATE
     Dosage: 800 MG, 1 TABLET BY 180 TABLET TWICE A DAY, TAKE WITH MEALS
     Route: 048
     Dates: start: 20160302
  11. AMLODIPINE [Concomitant]
     Active Substance: AMLODIPINE BESYLATE
     Dosage: 5 MG, 1 TABLET BY 90 TABLET NIGHTLY
     Route: 048
     Dates: start: 20160425

REACTIONS (10)
  - Blood urea increased [Unknown]
  - End stage renal disease [Unknown]
  - Neuropathy peripheral [Unknown]
  - Gastrointestinal haemorrhage [Recovered/Resolved]
  - Dialysis [Recovered/Resolved]
  - Fall [Unknown]
  - Gait disturbance [Unknown]
  - Haematoma [Unknown]
  - Diverticulum [Unknown]
  - Feeling abnormal [Unknown]
